FAERS Safety Report 5737395-2 (Version None)
Quarter: 2008Q2

REPORT INFORMATION
  Report Type: 
  Country: None (occurrence: None)
  Receive Date: 20080514
  Receipt Date: 20080130
  Transmission Date: 20081010
  Serious: Yes (Hospitalization)
  Sender: FDA-Public Use
  Company Number: US-BRISTOL-MYERS SQUIBB COMPANY-14060073

PATIENT
  Age: 50 Year
  Sex: Female

DRUGS (3)
  1. IXEMPRA KIT [Suspect]
     Indication: BREAST CANCER METASTATIC
     Route: 042
     Dates: start: 20071201
  2. XELODA [Concomitant]
     Dates: start: 20071201
  3. NEULASTA [Concomitant]
     Dates: start: 20080101

REACTIONS (5)
  - ATRIAL FLUTTER [None]
  - DIARRHOEA [None]
  - HAEMOGLOBIN DECREASED [None]
  - HYPOTENSION [None]
  - PULMONARY OEDEMA [None]
